FAERS Safety Report 18321298 (Version 4)
Quarter: 2020Q4

REPORT INFORMATION
  Report Type: Spontaneous
  Country: US (occurrence: US)
  Receive Date: 20200928
  Receipt Date: 20201104
  Transmission Date: 20210113
  Serious: Yes (Other)
  Sender: FDA-Public Use
  Company Number: US-PFIZER INC-2020369450

PATIENT
  Age: 70 Year
  Sex: Male

DRUGS (2)
  1. METHOTREXATE SODIUM. [Suspect]
     Active Substance: METHOTREXATE SODIUM
     Dosage: UNK
  2. XELJANZ [Suspect]
     Active Substance: TOFACITINIB CITRATE
     Dosage: 5 MG, 2X/DAY

REACTIONS (8)
  - Colitis ulcerative [Unknown]
  - Tinnitus [Unknown]
  - Drug ineffective [Unknown]
  - Temperature intolerance [Unknown]
  - Haemoglobin decreased [Unknown]
  - Renal failure [Unknown]
  - Cough [Unknown]
  - Hypoacusis [Unknown]
